FAERS Safety Report 16606153 (Version 1)
Quarter: 2019Q3

REPORT INFORMATION
  Report Type: Spontaneous
  Country: US (occurrence: US)
  Receive Date: 20190721
  Receipt Date: 20190721
  Transmission Date: 20191004
  Serious: No
  Sender: FDA-Public Use
  Company Number: US-GALDERMA-US18030212

PATIENT
  Age: 38 Year
  Sex: Female

DRUGS (5)
  1. PROACTIV MD DEEP CLEANSING FACE WASH [Concomitant]
     Active Substance: COSMETICS
     Indication: RASH PAPULAR
     Route: 061
     Dates: start: 20180703, end: 20180706
  2. PROACTIV MD ADAPALENE ACNE TREATMENT [Suspect]
     Active Substance: ADAPALENE
     Indication: RASH PAPULAR
     Dosage: 0.1%
     Route: 061
     Dates: start: 20180703, end: 20180706
  3. PROACTIV CLARIFYING COCONUT MASK [Concomitant]
     Indication: RASH PAPULAR
     Route: 061
     Dates: start: 20180703, end: 20180706
  4. ANTIBIOTICS [Concomitant]
     Active Substance: UNSPECIFIED INGREDIENT
     Indication: ANIMAL BITE
  5. PROACTIV MD DAILY OIL CONTROL SPF 30 [Suspect]
     Active Substance: AVOBENZONE\OCTISALATE\OCTOCRYLENE
     Indication: RASH PAPULAR
     Route: 061
     Dates: start: 20180703, end: 20180706

REACTIONS (3)
  - Product use in unapproved indication [Recovered/Resolved]
  - Skin lesion [Not Recovered/Not Resolved]
  - Skin hyperpigmentation [Not Recovered/Not Resolved]

NARRATIVE: CASE EVENT DATE: 20180703
